FAERS Safety Report 10442747 (Version 1)
Quarter: 2014Q3

REPORT INFORMATION
  Report Type: Other
  Country: CA (occurrence: CA)
  Receive Date: 20140909
  Receipt Date: 20140909
  Transmission Date: 20150326
  Serious: Yes (Hospitalization, Other)
  Sender: FDA-Public Use
  Company Number: CA-ACORDA-ACO_105828_2014

PATIENT
  Age: 41 Year
  Sex: Female

DRUGS (1)
  1. FAMPYRA [Suspect]
     Active Substance: DALFAMPRIDINE
     Indication: GAIT DISTURBANCE
     Dosage: 10 MG, BID
     Route: 048
     Dates: start: 20131006, end: 20140805

REACTIONS (1)
  - Colon cancer [Unknown]

NARRATIVE: CASE EVENT DATE: 20140805
